FAERS Safety Report 24334333 (Version 1)
Quarter: 2024Q3

REPORT INFORMATION
  Report Type: Spontaneous
  Country: DE (occurrence: DE)
  Receive Date: 20240918
  Receipt Date: 20240918
  Transmission Date: 20241017
  Serious: Yes (Other)
  Sender: SANDOZ
  Company Number: None

PATIENT
  Age: 35 Year
  Sex: Female

DRUGS (1)
  1. FILGRASTIM [Suspect]
     Active Substance: FILGRASTIM
     Indication: Stem cell donor
     Dosage: 2700 UG, 2X30 IU/0.5
     Route: 058
     Dates: start: 20130317, end: 20130321

REACTIONS (16)
  - Autoimmune thyroiditis [Not Recovered/Not Resolved]
  - Gastroenteritis norovirus [Recovered/Resolved]
  - Tonsillitis [Recovered/Resolved]
  - Blood potassium decreased [Recovered/Resolved]
  - Onychoclasis [Not Recovered/Not Resolved]
  - Nasopharyngitis [Recovered/Resolved]
  - Vessel puncture site haematoma [Recovered/Resolved]
  - Epistaxis [Recovered/Resolved]
  - Nasopharyngitis [Recovered/Resolved]
  - Abdominal pain upper [Recovered/Resolved]
  - Arthralgia [Recovered/Resolved]
  - Headache [Recovered/Resolved]
  - Myalgia [Recovered/Resolved]
  - Alopecia [Not Recovered/Not Resolved]
  - Bone pain [Recovered/Resolved]
  - Bone pain [Recovered/Resolved]

NARRATIVE: CASE EVENT DATE: 20130318
